FAERS Safety Report 9719687 (Version 1)
Quarter: 2013Q4

REPORT INFORMATION
  Report Type: Spontaneous
  Country: NL (occurrence: NL)
  Receive Date: 20131128
  Receipt Date: 20131128
  Transmission Date: 20140711
  Serious: Yes (Hospitalization)
  Sender: FDA-Public Use
  Company Number: NL-AMGEN-NLDSP2013083240

PATIENT
  Age: 62 Year
  Sex: Male

DRUGS (1)
  1. NPLATE [Suspect]
     Indication: PRODUCT USED FOR UNKNOWN INDICATION
     Dosage: 2 MG/KG, QWK
     Route: 058
     Dates: start: 201308

REACTIONS (1)
  - Transient ischaemic attack [Unknown]
